FAERS Safety Report 18207526 (Version 3)
Quarter: 2020Q3

REPORT INFORMATION
  Report Type: Spontaneous
  Country: US (occurrence: US)
  Receive Date: 20200828
  Receipt Date: 20200917
  Transmission Date: 20201103
  Serious: No
  Sender: FDA-Public Use
  Company Number: US-PFIZER INC-2020030624

PATIENT
  Age: 12 Year
  Sex: Male
  Weight: 34.01 kg

DRUGS (2)
  1. GENOTROPIN [Suspect]
     Active Substance: SOMATROPIN
     Indication: GROWTH RETARDATION
     Dosage: 1.4 MG, DAILY (AT NIGHT)
  2. GENOTROPIN [Suspect]
     Active Substance: SOMATROPIN
     Indication: NEPHROPATHY

REACTIONS (8)
  - Drug dose omission by device [Unknown]
  - Device information output issue [Unknown]
  - Device breakage [Unknown]
  - Device mechanical issue [Unknown]
  - Off label use [Unknown]
  - Device leakage [Unknown]
  - Product use in unapproved indication [Unknown]
  - Device use error [Unknown]

NARRATIVE: CASE EVENT DATE: 20200120
